FAERS Safety Report 5771887-5 (Version None)
Quarter: 2008Q2

REPORT INFORMATION
  Report Type: 
  Country: None (occurrence: None)
  Receive Date: 20080613
  Receipt Date: 20080605
  Transmission Date: 20081010
  Serious: Yes (Other)
  Sender: FDA-Public Use
  Company Number: B0524563A

PATIENT
  Age: 51 Year
  Sex: Male

DRUGS (4)
  1. ZINACEF [Suspect]
     Indication: PROPHYLAXIS
     Route: 042
     Dates: start: 20070625, end: 20070625
  2. GELATIN [Concomitant]
     Route: 065
  3. HYPNOVEL [Concomitant]
     Route: 065
  4. MARCAINE HCL W/ EPINEPHRINE [Concomitant]
     Route: 065

REACTIONS (5)
  - EPIGASTRIC DISCOMFORT [None]
  - HYPOTENSION [None]
  - PRURITUS [None]
  - RASH ERYTHEMATOUS [None]
  - TACHYCARDIA [None]
